FAERS Safety Report 10640700 (Version 2)
Quarter: 2014Q4

REPORT INFORMATION
  Report Type: Spontaneous
  Country: ES (occurrence: ES)
  Receive Date: 20141209
  Receipt Date: 20141219
  Transmission Date: 20150529
  Serious: Yes (Hospitalization)
  Sender: FDA-Public Use
  Company Number: ES-ACTELION-A-CH2014-108929

PATIENT
  Age: 4 Year
  Sex: Female

DRUGS (2)
  1. SILDENAFIL. [Suspect]
     Active Substance: SILDENAFIL
     Indication: PULMONARY ARTERIAL HYPERTENSION
     Route: 048
  2. TRACLEER [Suspect]
     Active Substance: BOSENTAN\BOSENTAN MONOHYDRATE
     Indication: PULMONARY ARTERIAL PRESSURE INCREASED
     Dosage: UNK
     Route: 048

REACTIONS (7)
  - Asthenia [Unknown]
  - Peripheral venous disease [Unknown]
  - Enteral feeding intolerance [Unknown]
  - Impaired gastric emptying [Unknown]
  - Food intolerance [Unknown]
  - Hepatomegaly [Unknown]
  - Gastrointestinal disorder postoperative [Unknown]
